FAERS Safety Report 7758147-8 (Version None)
Quarter: 2011Q3

REPORT INFORMATION
  Report Type: 
  Country: None (occurrence: None)
  Receive Date: 20110919
  Receipt Date: 20110908
  Transmission Date: 20111222
  Serious: Yes (Other)
  Sender: FDA-Public Use
  Company Number: US-BIOGENIDEC-2011BI034578

PATIENT
  Age: 55 Year
  Sex: Female

DRUGS (4)
  1. AVONEX [Suspect]
     Indication: MULTIPLE SCLEROSIS
     Route: 030
     Dates: start: 20041201
  2. TYSABRI [Concomitant]
     Indication: MULTIPLE SCLEROSIS
     Route: 042
     Dates: start: 20041201, end: 20050201
  3. AVONEX [Suspect]
     Route: 030
     Dates: start: 20041201, end: 20041201
  4. AVONEX [Suspect]
     Route: 030
     Dates: start: 19960802, end: 20040101

REACTIONS (2)
  - CARDIAC FAILURE [None]
  - PRURITUS [None]
